FAERS Safety Report 12186968 (Version 1)
Quarter: 2016Q1

REPORT INFORMATION
  Report Type: Spontaneous
  Country: US (occurrence: None)
  Receive Date: 20160316
  Receipt Date: 20160316
  Transmission Date: 20160526
  Serious: Yes (Hospitalization)
  Sender: FDA-Public Use
  Company Number: None

PATIENT
  Age: 69 Year
  Sex: Male
  Weight: 79.2 kg

DRUGS (2)
  1. TEMOZOLOMIDE. [Suspect]
     Active Substance: TEMOZOLOMIDE
     Dates: end: 20160205
  2. DEXAMETHASONE. [Concomitant]
     Active Substance: DEXAMETHASONE

REACTIONS (12)
  - Hypophagia [None]
  - Pollakiuria [None]
  - Fluid intake reduced [None]
  - Blood urea increased [None]
  - Balance disorder [None]
  - Peroneal nerve palsy [None]
  - Hyponatraemia [None]
  - Hyperkalaemia [None]
  - Hyperglycaemia [None]
  - Muscular weakness [None]
  - Hypersomnia [None]
  - Dehydration [None]

NARRATIVE: CASE EVENT DATE: 20160222
